FAERS Safety Report 5220672-1 (Version None)
Quarter: 2007Q1

REPORT INFORMATION
  Report Type: 
  Country: None (occurrence: None)
  Receive Date: 20070126
  Receipt Date: 20070123
  Transmission Date: 20070707
  Serious: Yes (Death)
  Sender: FDA-Public Use
  Company Number: PHFR2006GB01319

PATIENT
  Age: 50 Year
  Sex: Female

DRUGS (2)
  1. CLOZARIL [Suspect]
     Indication: SCHIZOPHRENIA
     Dosage: 150MG MANE AND 250MG NOCTE
     Route: 048
     Dates: start: 20020408
  2. VALPROATE SODIUM [Concomitant]
     Indication: CONVULSION PROPHYLAXIS
     Dosage: 200MG/DAY
     Route: 048
     Dates: start: 20060328

REACTIONS (5)
  - ANAEMIA [None]
  - CONVULSION [None]
  - DEPRESSION [None]
  - DRUG LEVEL DECREASED [None]
  - TONGUE BITING [None]
